FAERS Safety Report 5250034-2 (Version None)
Quarter: 2007Q1

REPORT INFORMATION
  Report Type: 
  Country: None (occurrence: None)
  Receive Date: 20070228
  Receipt Date: 20060126
  Transmission Date: 20070707
  Serious: No
  Sender: FDA-Public Use
  Company Number: US-GLAXOSMITHKLINE-A0591108A

PATIENT
  Age: 44 Year
  Sex: Female

DRUGS (4)
  1. LAMICTAL [Suspect]
     Dosage: 100MG TWICE PER DAY
     Route: 048
  2. SEROQUEL [Concomitant]
  3. LIPITOR [Concomitant]
  4. LAXATIVES [Concomitant]

REACTIONS (2)
  - FALL [None]
  - MYOCLONUS [None]
